FAERS Safety Report 12587106 (Version 2)
Quarter: 2016Q4

REPORT INFORMATION
  Report Type: Spontaneous
  Country: FR (occurrence: FR)
  Receive Date: 20160725
  Receipt Date: 20161111
  Transmission Date: 20170207
  Serious: Yes (Other)
  Sender: FDA-Public Use
  Company Number: FR-TOLMAR, INC.-2016FR007145

PATIENT
  Age: 75 Year
  Sex: Male

DRUGS (2)
  1. CASODEX [Concomitant]
     Active Substance: BICALUTAMIDE
     Dosage: UNK
     Dates: start: 201402
  2. ELIGARD [Suspect]
     Active Substance: LEUPROLIDE ACETATE
     Indication: PROSTATE CANCER METASTATIC
     Dosage: UNK, EVERY 6 MONTHS
     Route: 065
     Dates: start: 201402

REACTIONS (2)
  - Hormone-refractory prostate cancer [Unknown]
  - Self-medication [Unknown]

NARRATIVE: CASE EVENT DATE: 201501
